FAERS Safety Report 23320651 (Version 1)
Quarter: 2023Q4

REPORT INFORMATION
  Report Type: Spontaneous
  Country: FR (occurrence: FR)
  Receive Date: 20231220
  Receipt Date: 20231220
  Transmission Date: 20240109
  Serious: Yes (Hospitalization)
  Sender: FDA-Public Use
  Company Number: None

PATIENT
  Age: 84 Year
  Weight: 54 kg

DRUGS (7)
  1. EXEMESTANE [Suspect]
     Active Substance: EXEMESTANE
     Indication: Invasive lobular breast carcinoma
     Route: 048
     Dates: start: 20231019, end: 20231024
  2. POTASSIUM CHLORIDE [Concomitant]
     Active Substance: POTASSIUM CHLORIDE
     Indication: Hypokalaemia
     Route: 048
  3. VERZENIOS 100 mg, comprim? pellicul? [Concomitant]
     Indication: Invasive lobular breast carcinoma
     Route: 048
     Dates: start: 20230830, end: 202310
  4. LETROZOLE [Suspect]
     Active Substance: LETROZOLE
     Indication: Invasive lobular breast carcinoma
     Route: 048
     Dates: start: 202307, end: 20231019
  5. ASPIRIN [Concomitant]
     Active Substance: ASPIRIN
     Indication: Coronary artery disease
     Route: 048
  6. LIPTRUZET [Concomitant]
     Active Substance: ATORVASTATIN CALCIUM\EZETIMIBE
     Indication: Coronary artery disease
     Dosage: 10 MG/80 MG
     Route: 048
  7. ALDACTAZINE 25 mg/15 mg, comprim? s?cable [Concomitant]
     Indication: Coronary artery disease
     Route: 048

REACTIONS (1)
  - Cholestasis [Recovering/Resolving]

NARRATIVE: CASE EVENT DATE: 20231024
